FAERS Safety Report 11660175 (Version 2)
Quarter: 2015Q4

REPORT INFORMATION
  Report Type: Report from Study
  Country: CA (occurrence: CA)
  Receive Date: 20151026
  Receipt Date: 20151120
  Transmission Date: 20160304
  Serious: Yes (Other)
  Sender: FDA-Public Use
  Company Number: CA-GILEAD-2015-0178077

PATIENT
  Age: 55 Year
  Sex: Female

DRUGS (3)
  1. NAPROXEN. [Interacting]
     Active Substance: NAPROXEN
     Dosage: UNK
     Route: 065
     Dates: start: 201509, end: 201510
  2. NAPROXEN. [Interacting]
     Active Substance: NAPROXEN
     Indication: PRODUCT USED FOR UNKNOWN INDICATION
     Dosage: UNK
     Route: 065
     Dates: start: 201501, end: 2015
  3. LEDIPASVIR/SOFOSBUVIR [Suspect]
     Active Substance: LEDIPASVIR\SOFOSBUVIR
     Indication: CHRONIC HEPATITIS C
     Dosage: 1 DF, UNK
     Route: 048
     Dates: start: 20150820

REACTIONS (6)
  - Arthritis [Unknown]
  - Pruritus generalised [Unknown]
  - Face oedema [Unknown]
  - Psoriasis [Unknown]
  - Drug hypersensitivity [Unknown]
  - Lymphocyte count increased [Unknown]

NARRATIVE: CASE EVENT DATE: 201509
